FAERS Safety Report 14912387 (Version 2)
Quarter: 2018Q2

REPORT INFORMATION
  Report Type: Spontaneous
  Country: US (occurrence: US)
  Receive Date: 20180518
  Receipt Date: 20180522
  Transmission Date: 20180711
  Serious: No
  Sender: FDA-Public Use
  Company Number: US-PFIZER INC-2018203231

PATIENT
  Age: 79 Year
  Sex: Female

DRUGS (1)
  1. SUTENT [Suspect]
     Active Substance: SUNITINIB MALATE
     Indication: GASTRIC CANCER
     Dosage: 25 MG, CYCLIC (2 WEEKS ON 2 WEEKS OFF)
     Route: 048
     Dates: start: 20150210, end: 20180316

REACTIONS (1)
  - Pain [Recovering/Resolving]
